FAERS Safety Report 21458410 (Version 1)
Quarter: 2022Q4

REPORT INFORMATION
  Report Type: Spontaneous
  Country: US (occurrence: US)
  Receive Date: 20221014
  Receipt Date: 20221014
  Transmission Date: 20230112
  Serious: Yes (Other)
  Sender: FDA-Public Use
  Company Number: US-PFIZER INC-202201227189

PATIENT
  Age: 64 Year
  Sex: Female

DRUGS (1)
  1. XELJANZ XR [Suspect]
     Active Substance: TOFACITINIB CITRATE
     Dosage: 11 MG, DAILY
     Route: 048
     Dates: start: 20190413

REACTIONS (5)
  - Autoimmune hepatitis [Unknown]
  - Hepatic cirrhosis [Unknown]
  - Laboratory test abnormal [Not Recovered/Not Resolved]
  - Hepatic enzyme increased [Unknown]
  - Condition aggravated [Unknown]
